FAERS Safety Report 9948250 (Version 2)
Quarter: 2014Q1

REPORT INFORMATION
  Report Type: Report from Study
  Country: PR (occurrence: PR)
  Receive Date: 20140303
  Receipt Date: 20140303
  Transmission Date: 20141002
  Serious: No
  Sender: FDA-Public Use
  Company Number: PR-ABBVIE-12P-131-0891946-00

PATIENT
  Age: 64 Year
  Sex: Female
  Weight: 63.11 kg

DRUGS (2)
  1. HUMIRA 40 MG/0.8 ML PEN [Suspect]
     Indication: RHEUMATOID ARTHRITIS
     Route: 058
     Dates: start: 2010, end: 20111227
  2. HUMIRA 40 MG/0.8 ML PEN [Suspect]
     Route: 058
     Dates: start: 20120110

REACTIONS (6)
  - Fall [Unknown]
  - Asthma [Recovered/Resolved]
  - Skin discolouration [Unknown]
  - Oedema peripheral [Recovered/Resolved]
  - Exostosis [Unknown]
  - Dysstasia [Unknown]
